FAERS Safety Report 20958797 (Version 1)
Quarter: 2022Q2

REPORT INFORMATION
  Report Type: Spontaneous
  Country: GB (occurrence: GB)
  Receive Date: 20220614
  Receipt Date: 20220614
  Transmission Date: 20220721
  Serious: Yes (Hospitalization, Other)
  Sender: FDA-Public Use
  Company Number: GB-GLAXOSMITHKLINE-GBCH2022GSK020720

PATIENT

DRUGS (10)
  1. ACETAMINOPHEN [Suspect]
     Active Substance: ACETAMINOPHEN
     Indication: Rhinitis
     Dosage: 120 MG, QID (6 HOURSLY)
  2. ACETAMINOPHEN [Suspect]
     Active Substance: ACETAMINOPHEN
     Indication: Cough
  3. ACETAMINOPHEN [Suspect]
     Active Substance: ACETAMINOPHEN
     Indication: Pyrexia
  4. ACETAMINOPHEN [Suspect]
     Active Substance: ACETAMINOPHEN
     Indication: Feeling cold
  5. ACETAMINOPHEN [Suspect]
     Active Substance: ACETAMINOPHEN
     Indication: Depressed level of consciousness
  6. IBUPROFEN [Suspect]
     Active Substance: IBUPROFEN
     Indication: Rhinitis
     Dosage: UNK
  7. IBUPROFEN [Suspect]
     Active Substance: IBUPROFEN
     Indication: Cough
  8. IBUPROFEN [Suspect]
     Active Substance: IBUPROFEN
     Indication: Pyrexia
  9. IBUPROFEN [Suspect]
     Active Substance: IBUPROFEN
     Indication: Feeling cold
  10. IBUPROFEN [Suspect]
     Active Substance: IBUPROFEN
     Indication: Depressed level of consciousness

REACTIONS (1)
  - Hypothermia [Recovering/Resolving]
